FAERS Safety Report 4435630-4 (Version None)
Quarter: 2004Q3

REPORT INFORMATION
  Report Type: 
  Country: None (occurrence: None)
  Receive Date: 20040726
  Receipt Date: 20040510
  Transmission Date: 20050211
  Serious: No
  Sender: FDA-Public Use
  Company Number: USA040567076

PATIENT
  Age: 79 Year
  Sex: Female

DRUGS (8)
  1. FORTEO [Suspect]
     Indication: OSTEOPOROSIS
     Dosage: 20 UG DAY
     Dates: start: 20040301
  2. CARAFATE [Concomitant]
  3. LIDOCAINE [Concomitant]
  4. DIAZEPAM [Concomitant]
  5. BUMETANIDE [Concomitant]
  6. LEVOXYL [Concomitant]
  7. METOCLOPRAMIDE [Concomitant]
  8. SALAGEN [Concomitant]

REACTIONS (2)
  - DIZZINESS [None]
  - INJECTION SITE STINGING [None]
